FAERS Safety Report 24409712 (Version 2)
Quarter: 2024Q4

REPORT INFORMATION
  Report Type: Report from Study
  Country: CL (occurrence: CL)
  Receive Date: 20241008
  Receipt Date: 20241028
  Transmission Date: 20250115
  Serious: Yes (Other)
  Sender: SANDOZ
  Company Number: CL-SANDOZ-SDZ2024CL084513

PATIENT
  Age: 50 Year
  Sex: Male

DRUGS (1)
  1. HYRIMOZ [Suspect]
     Active Substance: ADALIMUMAB-ADAZ
     Indication: Psoriasis
     Dosage: 40 MG, Q2W (40 MG ONCE EVERY TWO WEEKS )
     Route: 058
     Dates: start: 20220522, end: 20240916

REACTIONS (2)
  - Bladder cancer [Unknown]
  - Tuberculosis [Unknown]

NARRATIVE: CASE EVENT DATE: 20240801
